FAERS Safety Report 17471735 (Version 1)
Quarter: 2020Q1

REPORT INFORMATION
  Report Type: Other
  Country: US (occurrence: US)
  Receive Date: 20200228
  Receipt Date: 20200228
  Transmission Date: 20200409
  Serious: Yes (Life-Threatening, Hospitalization, Other)
  Sender: FDA-Public Use
  Company Number: US-VISTA PHARMACEUTICALS INC.-2081063

PATIENT
  Age: 21 Year
  Sex: Female

DRUGS (2)
  1. VORINOSTAT [Suspect]
     Active Substance: VORINOSTAT
     Route: 065
  2. SULFAMETHOXAZOLE AND TRIMETHOPRIM [Suspect]
     Active Substance: SULFAMETHOXAZOLE\TRIMETHOPRIM
     Indication: ACUTE LYMPHOCYTIC LEUKAEMIA
     Route: 065

REACTIONS (3)
  - Cardio-respiratory arrest [Unknown]
  - Torsade de pointes [Unknown]
  - Electrocardiogram QT prolonged [Unknown]
